FAERS Safety Report 18162395 (Version 1)
Quarter: 2020Q3

REPORT INFORMATION
  Report Type: Spontaneous
  Country: US (occurrence: US)
  Receive Date: 20200818
  Receipt Date: 20200818
  Transmission Date: 20201103
  Serious: Yes (Hospitalization)
  Sender: FDA-Public Use
  Company Number: None

PATIENT
  Age: 61 Year
  Sex: Female
  Weight: 68.9 kg

DRUGS (1)
  1. OLAPARIB (AZD2281) (85896) [Suspect]
     Active Substance: OLAPARIB
     Dates: end: 20200810

REACTIONS (1)
  - Cellulitis [None]

NARRATIVE: CASE EVENT DATE: 20200811
